FAERS Safety Report 7607057-5 (Version None)
Quarter: 2011Q3

REPORT INFORMATION
  Report Type: 
  Country: None (occurrence: None)
  Receive Date: 20110713
  Receipt Date: 20110629
  Transmission Date: 20111222
  Serious: Yes (Other)
  Sender: FDA-Public Use
  Company Number: US-BAYER-2011-057173

PATIENT
  Age: 37 Year
  Sex: Male

DRUGS (12)
  1. DOXORUBICIN HCL [Suspect]
  2. FRAGMIN [Concomitant]
     Dosage: 15000 U, UNK
     Dates: start: 20110308
  3. KYTRIL [Concomitant]
     Dosage: 24 MG, UNK
  4. VINCRISTINE [Suspect]
  5. SARGRAMOSTIM [Suspect]
     Indication: BLOOD DISORDER
     Dosage: 463 ?G, DAYS 3-13
     Route: 058
     Dates: start: 20110617, end: 20110618
  6. PREDNISONE [Suspect]
  7. BACTRIM [Concomitant]
     Dosage: UNK
     Dates: start: 20110408
  8. RITUXIMAB [Suspect]
  9. TYLENOL REGULAR [Concomitant]
     Dosage: 650 MG, UNK
     Dates: start: 20110615
  10. BENADRYL [Concomitant]
     Dosage: 50 MG, UNK
     Dates: start: 20110615
  11. PEPCID [Concomitant]
     Dosage: 20 MG, UNK
     Route: 042
     Dates: start: 20110615
  12. CYCLOPHOSPHAMIDE [Suspect]

REACTIONS (3)
  - ASTHENIA [None]
  - ABASIA [None]
  - LIMB DISCOMFORT [None]
